FAERS Safety Report 24087595 (Version 1)
Quarter: 2024Q3

REPORT INFORMATION
  Report Type: Report from Study
  Country: RO (occurrence: RO)
  Receive Date: 20240714
  Receipt Date: 20240714
  Transmission Date: 20241016
  Serious: Yes (Death, Hospitalization, Other)
  Sender: ABBVIE
  Company Number: RO-ABBVIE-5835026

PATIENT
  Age: 39 Year
  Sex: Male

DRUGS (2)
  1. GLECAPREVIR\PIBRENTASVIR [Suspect]
     Active Substance: GLECAPREVIR\PIBRENTASVIR
     Indication: Chronic hepatitis C
     Dosage: 300 MG/120 MG
     Route: 048
     Dates: start: 20240222, end: 20240417
  2. ENTECAVIR [Concomitant]
     Active Substance: ENTECAVIR
     Indication: Chronic hepatitis B

REACTIONS (25)
  - Cardio-respiratory arrest [Fatal]
  - Paraparesis [Not Recovered/Not Resolved]
  - Immunosuppression [Not Recovered/Not Resolved]
  - Myelopathy [Not Recovered/Not Resolved]
  - Paraplegia [Not Recovered/Not Resolved]
  - Malaise [Not Recovered/Not Resolved]
  - Chronic kidney disease [Fatal]
  - Pain [Not Recovered/Not Resolved]
  - Depressed level of consciousness [Fatal]
  - Dyspnoea [Not Recovered/Not Resolved]
  - General physical health deterioration [Not Recovered/Not Resolved]
  - Dyskinesia [Not Recovered/Not Resolved]
  - Cervical cord compression [Not Recovered/Not Resolved]
  - Sepsis [Not Recovered/Not Resolved]
  - Spondylitic myelopathy [Not Recovered/Not Resolved]
  - Myelopathy [Not Recovered/Not Resolved]
  - Depressed level of consciousness [Not Recovered/Not Resolved]
  - Asthenia [Not Recovered/Not Resolved]
  - Dysaesthesia [Not Recovered/Not Resolved]
  - Epilepsy [Not Recovered/Not Resolved]
  - Back pain [Not Recovered/Not Resolved]
  - Intervertebral disc disorder [Not Recovered/Not Resolved]
  - Arteriovenous fistula [Not Recovered/Not Resolved]
  - Muscle spasticity [Not Recovered/Not Resolved]
  - Coma [Fatal]

NARRATIVE: CASE EVENT DATE: 20240624
